FAERS Safety Report 20017222 (Version 2)
Quarter: 2021Q4

REPORT INFORMATION
  Report Type: Spontaneous
  Country: BR (occurrence: None)
  Receive Date: 20211030
  Receipt Date: 20211126
  Transmission Date: 20220303
  Serious: Yes (Other)
  Sender: FDA-Public Use
  Company Number: BR-ROCHE-2945442

PATIENT
  Age: 54 Year
  Sex: Female
  Weight: 111 kg

DRUGS (2)
  1. ACTEMRA [Suspect]
     Active Substance: TOCILIZUMAB
     Indication: COVID-19
     Dosage: 480 MG VIA INTRAVENOUS SINGLE DOSE
     Route: 042
     Dates: start: 20210511, end: 20210511
  2. METHYLPREDNISOLONE [Suspect]
     Active Substance: METHYLPREDNISOLONE
     Indication: Product used for unknown indication
     Dosage: 40 MG EVERY 8 HOURS
     Route: 042
     Dates: start: 20210509

REACTIONS (10)
  - Off label use [Unknown]
  - Hypoxia [Recovered/Resolved]
  - Tachypnoea [Recovered/Resolved]
  - Staphylococcal infection [Recovered/Resolved]
  - Aspergillus infection [Recovered/Resolved]
  - Increased bronchial secretion [Recovered/Resolved]
  - Pyrexia [Recovered/Resolved]
  - Candida infection [Recovered/Resolved]
  - Staphylococcal infection [Recovered/Resolved]
  - Endotracheal intubation [Recovered/Resolved]

NARRATIVE: CASE EVENT DATE: 20210511
